FAERS Safety Report 4576160-9 (Version None)
Quarter: 2005Q1

REPORT INFORMATION
  Report Type: 
  Country: None (occurrence: None)
  Receive Date: 20050204
  Receipt Date: 20050121
  Transmission Date: 20050727
  Serious: Yes (Hospitalization, Other)
  Sender: FDA-Public Use
  Company Number: 2004103901

PATIENT
  Age: 74 Year
  Sex: Female
  Weight: 55 kg

DRUGS (4)
  1. ALPRESS                     (PRAZOSIN) [Suspect]
     Indication: HYPERTENSION
     Dates: end: 20041101
  2. ARICEPT [Suspect]
     Indication: ILL-DEFINED DISORDER
     Dosage: 10 MG (1 D)
     Dates: start: 20040801, end: 20041106
  3. ISOPHANE INSULIN               (ISOPHANE INSULIN) [Concomitant]
  4. RAMIPRIL [Concomitant]

REACTIONS (7)
  - BLOOD PRESSURE SYSTOLIC INCREASED [None]
  - CEREBRAL ATROPHY [None]
  - DEMENTIA [None]
  - DYSPNOEA [None]
  - HEART RATE DECREASED [None]
  - HYPOGLYCAEMIA [None]
  - MALAISE [None]
